FAERS Safety Report 24676061 (Version 1)
Quarter: 2024Q4

REPORT INFORMATION
  Report Type: Spontaneous
  Country: CN (occurrence: CN)
  Receive Date: 20241128
  Receipt Date: 20241128
  Transmission Date: 20250115
  Serious: Yes (Hospitalization)
  Sender: PFIZER
  Company Number: CN-PFIZER INC-PV202400153518

PATIENT
  Age: 70 Year
  Sex: Male

DRUGS (5)
  1. FLUCONAZOLE [Suspect]
     Active Substance: FLUCONAZOLE
     Indication: Pneumonia
     Dosage: 0.4 G, 1X/DAY
     Route: 041
     Dates: start: 20241012, end: 20241023
  2. FLUCONAZOLE [Suspect]
     Active Substance: FLUCONAZOLE
     Indication: Candida infection
  3. LINEZOLID [Suspect]
     Active Substance: LINEZOLID
     Indication: Pneumonia
     Dosage: 0.6 G, 2X/DAY (EVERY 12 HOURS)
     Route: 041
     Dates: start: 20241012, end: 20241023
  4. LINEZOLID [Suspect]
     Active Substance: LINEZOLID
     Indication: Streptococcal infection
  5. LINEZOLID [Suspect]
     Active Substance: LINEZOLID
     Indication: Bacterial infection

REACTIONS (1)
  - Liver injury [Recovering/Resolving]

NARRATIVE: CASE EVENT DATE: 20241023
